FAERS Safety Report 8091172-9 (Version None)
Quarter: 2012Q1

REPORT INFORMATION
  Report Type: 
  Country: None (occurrence: None)
  Receive Date: 20120129
  Receipt Date: 20110928
  Transmission Date: 20120608
  Serious: No
  Sender: FDA-Public Use
  Company Number: US-ABBOTT-11P-163-0859356-00

PATIENT
  Sex: Female

DRUGS (3)
  1. HUMIRA [Suspect]
     Route: 058
  2. HUMIRA [Suspect]
     Indication: PSORIASIS
     Dosage: 2 PENS DAY 1
     Route: 058
     Dates: start: 20110801, end: 20110801
  3. HUMIRA [Suspect]
     Dosage: 1 PEN DAY 8
     Route: 058

REACTIONS (2)
  - INCREASED TENDENCY TO BRUISE [None]
  - PSORIASIS [None]
